FAERS Safety Report 15808408 (Version 1)
Quarter: 2019Q1

REPORT INFORMATION
  Report Type: Spontaneous
  Country: US (occurrence: US)
  Receive Date: 20190110
  Receipt Date: 20190110
  Transmission Date: 20190417
  Serious: Yes (Death)
  Sender: FDA-Public Use
  Company Number: US-TEVA-2019-US-994641

PATIENT
  Age: 14 Month
  Sex: Female

DRUGS (2)
  1. HEROIN [Suspect]
     Active Substance: DIAMORPHINE
     Route: 065
  2. FENTANYL. [Suspect]
     Active Substance: FENTANYL
     Route: 065

REACTIONS (4)
  - Brain oedema [Fatal]
  - Visceral congestion [Fatal]
  - Product administration error [Fatal]
  - Toxicity to various agents [Fatal]
